FAERS Safety Report 23543447 (Version 1)
Quarter: 2024Q1

REPORT INFORMATION
  Report Type: Spontaneous
  Country: US (occurrence: US)
  Receive Date: 20240220
  Receipt Date: 20240220
  Transmission Date: 20240409
  Serious: Yes (Other)
  Sender: FDA-Public Use
  Company Number: US-BRISTOL-MYERS SQUIBB COMPANY-2024-023372

PATIENT
  Age: 82 Year
  Sex: Female
  Weight: 76.66 kg

DRUGS (1)
  1. REVLIMID [Suspect]
     Active Substance: LENALIDOMIDE
     Indication: Diffuse large B-cell lymphoma
     Dosage: 3WKSON1WKOFF
     Route: 048

REACTIONS (4)
  - Rash pruritic [Recovering/Resolving]
  - Swelling face [Recovering/Resolving]
  - Off label use [Unknown]
  - Eye swelling [Recovering/Resolving]
